FAERS Safety Report 16730972 (Version 1)
Quarter: 2019Q3

REPORT INFORMATION
  Report Type: Spontaneous
  Country: GB (occurrence: GB)
  Receive Date: 20190822
  Receipt Date: 20190822
  Transmission Date: 20191005
  Serious: Yes (Other)
  Sender: FDA-Public Use
  Company Number: GB-INDIVIOR EUROPE LIMITED-INDV-121184-2019

PATIENT
  Age: 39 Year
  Sex: Male
  Weight: 75 kg

DRUGS (1)
  1. BUPRENORPHINE TABLET [Suspect]
     Active Substance: BUPRENORPHINE
     Indication: PRODUCT USED FOR UNKNOWN INDICATION
     Dosage: 6 MG, UNKNOWN
     Route: 060
     Dates: start: 20190606, end: 2019

REACTIONS (4)
  - Drug abuse [Recovered/Resolved]
  - Feeling abnormal [Unknown]
  - Formication [Unknown]
  - Pruritus [Unknown]

NARRATIVE: CASE EVENT DATE: 2019
